FAERS Safety Report 4590008-8 (Version None)
Quarter: 2005Q1

REPORT INFORMATION
  Report Type: 
  Country: None (occurrence: None)
  Receive Date: 20050217
  Receipt Date: 20050207
  Transmission Date: 20050727
  Serious: Yes (Life-Threatening, Hospitalization)
  Sender: FDA-Public Use
  Company Number: AWBNIASPAND2004-35

PATIENT
  Age: 68 Year
  Sex: Male

DRUGS (10)
  1. NIASPAN [Suspect]
     Indication: DYSLIPIDAEMIA
     Dosage: 1000 MG QD PO
     Route: 048
     Dates: start: 20050111
  2. MOCLOBEMIDE [Concomitant]
  3. ESOMEPRAZOLE [Concomitant]
  4. PIROXICAM [Concomitant]
  5. SOTALOL HCL [Concomitant]
  6. HYDROCHLOROTHIAZIDE / IRBESARTAN [Concomitant]
  7. ACETYLSALICYLIC ACID [Concomitant]
  8. DOXAZOSIN MESYLATE [Concomitant]
  9. AMLODIPINE BESYLATE [Concomitant]
  10. EZETIMIBE / SIMVASTATIN [Concomitant]

REACTIONS (2)
  - GASTRIC HAEMORRHAGE [None]
  - SUICIDE ATTEMPT [None]
